FAERS Safety Report 12818588 (Version 2)
Quarter: 2016Q4

REPORT INFORMATION
  Report Type: Spontaneous
  Country: IT (occurrence: IT)
  Receive Date: 20161006
  Receipt Date: 20161017
  Transmission Date: 20170207
  Serious: Yes (Hospitalization, Disabling, Other)
  Sender: FDA-Public Use
  Company Number: IT-SUN PHARMACEUTICAL INDUSTRIES LTD-2016RR-125471

PATIENT
  Age: 39 Year
  Sex: Male

DRUGS (3)
  1. GABAPENTIN. [Suspect]
     Active Substance: GABAPENTIN
     Indication: PRODUCT USED FOR UNKNOWN INDICATION
     Dosage: 600 MG, TID
     Route: 065
  2. MUTABON FORTE 25 MG + 4 MG [Suspect]
     Active Substance: AMITRIPTYLINE HYDROCHLORIDE\PERPHENAZINE
     Indication: ANXIETY
     Dosage: DAILY
     Route: 048
     Dates: start: 20110101, end: 20131231
  3. BRINTELLIX [Suspect]
     Active Substance: VORTIOXETINE HYDROBROMIDE
     Indication: PRODUCT USED FOR UNKNOWN INDICATION
     Route: 065

REACTIONS (10)
  - Headache [Unknown]
  - Suicidal ideation [Not Recovered/Not Resolved]
  - Dysgeusia [Unknown]
  - Asthenia [Unknown]
  - Derealisation [Unknown]
  - General physical health deterioration [Unknown]
  - Parosmia [Unknown]
  - Paraesthesia [Unknown]
  - Hallucination, auditory [Unknown]
  - Toxicity to various agents [Recovered/Resolved with Sequelae]

NARRATIVE: CASE EVENT DATE: 2011
